FAERS Safety Report 24405327 (Version 1)
Quarter: 2024Q4

REPORT INFORMATION
  Report Type: Report from Study
  Country: US (occurrence: US)
  Receive Date: 20241007
  Receipt Date: 20241007
  Transmission Date: 20250115
  Serious: No
  Sender: ROCHE
  Company Number: US-ROCHE-3578275

PATIENT
  Age: 87 Year
  Sex: Female

DRUGS (21)
  1. OBINUTUZUMAB [Suspect]
     Active Substance: OBINUTUZUMAB
     Indication: Chronic lymphocytic leukaemia
     Route: 042
  2. ALLOPURINOL [Concomitant]
     Active Substance: ALLOPURINOL
     Route: 048
  3. AMLODIPINE [Concomitant]
     Active Substance: AMLODIPINE BESYLATE
     Route: 048
  4. ASPIRIN [Concomitant]
     Active Substance: ASPIRIN
     Route: 048
  5. VITAMIN D3 [Concomitant]
     Active Substance: CHOLECALCIFEROL
     Route: 048
  6. INSULIN NOS [Concomitant]
     Active Substance: INSULIN NOS
  7. EZETIMIBE [Concomitant]
     Active Substance: EZETIMIBE
     Route: 048
  8. GLIPIZIDE [Concomitant]
     Active Substance: GLIPIZIDE
     Route: 048
  9. HYDROCHLOROTHIAZIDE\LOSARTAN [Concomitant]
     Active Substance: HYDROCHLOROTHIAZIDE\LOSARTAN
     Dosage: 12.5MG-50MG
     Route: 048
  10. HUMALOG [Concomitant]
     Active Substance: INSULIN LISPRO
     Dosage: 100 UNITS/ML
     Route: 058
  11. LEVOTHYROXINE [Concomitant]
     Active Substance: LEVOTHYROXINE
     Route: 048
  12. LOPRESSOR [Concomitant]
     Active Substance: METOPROLOL TARTRATE
     Route: 048
  13. IRON [Concomitant]
     Active Substance: IRON
     Route: 048
  14. MINERALS\VITAMINS [Concomitant]
     Active Substance: MINERALS\VITAMINS
     Route: 048
  15. LUBRICANT EYE DROPS [Concomitant]
     Active Substance: POLYETHYLENE GLYCOL 400\PROPYLENE GLYCOL
  16. ALCOHOL PREP PAD [Concomitant]
  17. HUMALOG KWIKPEN [Concomitant]
     Active Substance: INSULIN LISPRO
  18. SERTRALINE [Concomitant]
     Active Substance: SERTRALINE HYDROCHLORIDE
     Route: 048
  19. VENETOCLAX [Concomitant]
     Active Substance: VENETOCLAX
     Dosage: 10MG-50MG-100MG
     Route: 048
  20. ZOFRAN [Concomitant]
     Active Substance: ONDANSETRON HYDROCHLORIDE
     Dosage: 1-2 TABS
     Route: 048
  21. PROCHLORPERAZINE [Concomitant]
     Active Substance: PROCHLORPERAZINE
     Route: 048

REACTIONS (4)
  - Chills [Unknown]
  - Nausea [Unknown]
  - Flushing [Unknown]
  - Feeling hot [Unknown]
